FAERS Safety Report 7357043-8 (Version None)
Quarter: 2011Q1

REPORT INFORMATION
  Report Type: 
  Country: None (occurrence: None)
  Receive Date: 20110308
  Receipt Date: 20110228
  Transmission Date: 20110831
  Serious: Yes (Other)
  Sender: FDA-Public Use
  Company Number: LEO-2011-00211

PATIENT
  Age: 39 Year
  Sex: Female

DRUGS (2)
  1. INNOHEP [Suspect]
     Indication: LIGAMENT OPERATION
     Dosage: 4500 IU, 1 D, SUBCUTANEOUS
     Route: 058
     Dates: start: 20110201
  2. INNOHEP [Suspect]
     Indication: THROMBOSIS PROPHYLAXIS
     Dosage: 4500 IU, 1 D, SUBCUTANEOUS
     Route: 058
     Dates: start: 20110201

REACTIONS (1)
  - THROMBOCYTOSIS [None]
